FAERS Safety Report 21795927 (Version 2)
Quarter: 2023Q2

REPORT INFORMATION
  Report Type: Spontaneous
  Country: IT (occurrence: IT)
  Receive Date: 20221229
  Receipt Date: 20230427
  Transmission Date: 20230721
  Serious: Yes (Other)
  Sender: FDA-Public Use
  Company Number: IT-009507513-2212ITA009368

PATIENT
  Sex: Male

DRUGS (3)
  1. PEMBROLIZUMAB [Suspect]
     Active Substance: PEMBROLIZUMAB
     Indication: Squamous cell carcinoma of head and neck
     Dosage: 200 MILLIGRAM, Q3W
     Dates: start: 202205
  2. CISPLATIN [Suspect]
     Active Substance: CISPLATIN
     Indication: Squamous cell carcinoma of head and neck
     Dosage: FOR 18 WEEKS
     Route: 042
     Dates: start: 202205
  3. FLUOROURACIL [Suspect]
     Active Substance: FLUOROURACIL
     Indication: Squamous cell carcinoma of head and neck
     Route: 042
     Dates: start: 202205

REACTIONS (7)
  - Myelosuppression [Unknown]
  - Mucosal toxicity [Unknown]
  - Stomatitis [Unknown]
  - Toxicity to various agents [Unknown]
  - Malnutrition [Unknown]
  - Dysphagia [Unknown]
  - Loss of personal independence in daily activities [Unknown]
